FAERS Safety Report 25060363 (Version 1)
Quarter: 2025Q1

REPORT INFORMATION
  Report Type: Spontaneous
  Country: GB (occurrence: GB)
  Receive Date: 20250310
  Receipt Date: 20250310
  Transmission Date: 20250409
  Serious: Yes (Other)
  Sender: ELI LILLY AND COMPANY
  Company Number: None

PATIENT
  Sex: Female

DRUGS (1)
  1. TERIPARATIDE [Suspect]
     Active Substance: TERIPARATIDE
     Indication: Product used for unknown indication
     Dosage: 20 UG, DAILY
     Route: 065
     Dates: start: 202502

REACTIONS (10)
  - Constipation [Recovering/Resolving]
  - Palpitations [Recovering/Resolving]
  - Fatigue [Recovering/Resolving]
  - Dizziness [Recovered/Resolved]
  - Arthralgia [Recovering/Resolving]
  - Headache [Recovering/Resolving]
  - Muscle spasms [Recovering/Resolving]
  - Bowel movement irregularity [Unknown]
  - Bladder disorder [Unknown]
  - Pain in extremity [Unknown]

NARRATIVE: CASE EVENT DATE: 20250201
